FAERS Safety Report 7707544-5 (Version None)
Quarter: 2011Q3

REPORT INFORMATION
  Report Type: 
  Country: None (occurrence: None)
  Receive Date: 20110818
  Receipt Date: 20110812
  Transmission Date: 20111222
  Serious: Yes (Hospitalization)
  Sender: FDA-Public Use
  Company Number: A0941118A

PATIENT
  Age: 47 Year
  Sex: Male

DRUGS (11)
  1. GABAPENTIN [Suspect]
     Indication: DIABETIC NEUROPATHY
     Dosage: 600 MG / THREE TIMES PER DAY / ORAL
     Route: 048
  2. PIOGLITAZONE [Concomitant]
  3. DULOXETIME HYDROCHLORIDE [Concomitant]
  4. PANTOPRAZOLE [Suspect]
     Indication: GASTROOESOPHAGEAL REFLUX DISEASE
     Dosage: 40 MG / PER DAY
  5. ARIPIPRAZOLE [Concomitant]
  6. CALCIUM CARBONATE [Suspect]
     Indication: GASTROOESOPHAGEAL REFLUX DISEASE
     Dosage: ORAL
     Route: 048
  7. METOCLOPRAMIDE HCL [Suspect]
     Indication: GASTROOESOPHAGEAL REFLUX DISEASE
  8. ESOMEPRAZOLE SODIUM [Suspect]
     Indication: GASTROOESOPHAGEAL REFLUX DISEASE
  9. ZAFIRLUKAST [Concomitant]
  10. METFFORMIN HYDROCHLORIDE [Concomitant]
  11. OMEPRAZOLE [Suspect]
     Indication: GASTROOESOPHAGEAL REFLUX DISEASE

REACTIONS (4)
  - DRUG INEFFECTIVE [None]
  - PNEUMONIA [None]
  - DIABETIC COMA [None]
  - LIGAMENT SPRAIN [None]
